FAERS Safety Report 15476177 (Version 3)
Quarter: 2018Q4

REPORT INFORMATION
  Report Type: Spontaneous
  Country: US (occurrence: US)
  Receive Date: 20181009
  Receipt Date: 20181213
  Transmission Date: 20190205
  Serious: Yes (Hospitalization)
  Sender: FDA-Public Use
  Company Number: US-ASTRAZENECA-2018SF29092

PATIENT
  Age: 1138 Month
  Sex: Male
  Weight: 67.6 kg

DRUGS (1)
  1. SYMBICORT [Suspect]
     Active Substance: BUDESONIDE\FORMOTEROL FUMARATE DIHYDRATE
     Indication: CHRONIC OBSTRUCTIVE PULMONARY DISEASE
     Dosage: 160/4.5MCG, TWO PUFFS TWICE A DAY
     Route: 055
     Dates: start: 2018

REACTIONS (3)
  - Chronic obstructive pulmonary disease [Recovering/Resolving]
  - Device issue [Unknown]
  - Off label use of device [Unknown]

NARRATIVE: CASE EVENT DATE: 201802
